FAERS Safety Report 21553928 (Version 1)
Quarter: 2022Q4

REPORT INFORMATION
  Report Type: Spontaneous
  Country: US (occurrence: US)
  Receive Date: 20221104
  Receipt Date: 20221104
  Transmission Date: 20230112
  Serious: No
  Sender: FDA-Public Use
  Company Number: US-Accord-272453

PATIENT
  Age: 44 Year
  Sex: Female
  Weight: 130.63 kg

DRUGS (4)
  1. TRAZODONE HYDROCHLORIDE [Interacting]
     Active Substance: TRAZODONE HYDROCHLORIDE
     Indication: Product used for unknown indication
  2. MIFEPRISTONE [Interacting]
     Active Substance: MIFEPRISTONE
     Indication: Peptic ulcer
     Dosage: QD
     Route: 048
     Dates: start: 20220623, end: 20220706
  3. TRAZODONE HYDROCHLORIDE [Interacting]
     Active Substance: TRAZODONE HYDROCHLORIDE
     Indication: Product used for unknown indication
     Dosage: HALF TABLET
  4. MIFEPRISTONE [Interacting]
     Active Substance: MIFEPRISTONE
     Indication: Peptic ulcer
     Dosage: QD
     Route: 048
     Dates: start: 20220707

REACTIONS (6)
  - Somnolence [Unknown]
  - Insomnia [Not Recovered/Not Resolved]
  - Nausea [Unknown]
  - Vomiting [Unknown]
  - Muscle spasms [Unknown]
  - Drug interaction [Unknown]

NARRATIVE: CASE EVENT DATE: 20220601
